FAERS Safety Report 13020562 (Version 2)
Quarter: 2016Q4

REPORT INFORMATION
  Report Type: Spontaneous
  Country: US (occurrence: US)
  Receive Date: 20161212
  Receipt Date: 20161213
  Transmission Date: 20170207
  Serious: Yes (Other)
  Sender: FDA-Public Use
  Company Number: US-CELGENEUS-USA-2016118358

PATIENT
  Sex: Female

DRUGS (1)
  1. OTEZLA [Suspect]
     Active Substance: APREMILAST
     Indication: PSORIASIS
     Dosage: 30MG
     Route: 048

REACTIONS (7)
  - Pain [Not Recovered/Not Resolved]
  - Cataract [Unknown]
  - Platelet count decreased [Not Recovered/Not Resolved]
  - Diarrhoea [Unknown]
  - Inflammation [Unknown]
  - Joint swelling [Not Recovered/Not Resolved]
  - Vomiting [Unknown]
